FAERS Safety Report 6411252-0 (Version None)
Quarter: 2009Q4

REPORT INFORMATION
  Report Type: 
  Country: None (occurrence: None)
  Receive Date: 20091022
  Receipt Date: 20091012
  Transmission Date: 20100525
  Serious: Yes (Death)
  Sender: FDA-Public Use
  Company Number: AR-PFIZER INC-2009282358

PATIENT
  Age: 62 Year

DRUGS (1)
  1. PREDNISOLONE STEAGLATE AND PREDNISOLONE [Suspect]

REACTIONS (1)
  - STRONGYLOIDIASIS [None]
